FAERS Safety Report 9538476 (Version 1)
Quarter: 2013Q2

REPORT INFORMATION
  Report Type: Spontaneous
  Country: US (occurrence: None)
  Receive Date: 20130517
  Receipt Date: 20130517
  Transmission Date: 20140414
  Serious: No
  Sender: FDA-Public Use
  Company Number: 1000043024

PATIENT
  Age: 45 Year
  Sex: Female

DRUGS (12)
  1. VIIBRYD (VILAZODONE HYDROCHLORIDE) (TABLETS) [Suspect]
     Indication: DEPRESSION
     Route: 048
     Dates: start: 201108, end: 201301
  2. OMEPRAZOLE (OMEPRAZOLE) [Concomitant]
  3. LEVETIRACETAM (LEVETIRACETAM) [Concomitant]
  4. LACTASE (TILACTASE) [Concomitant]
  5. XOPENEX (LEVOSALBUTAMOL HYDROCHLORIDE) [Concomitant]
  6. SPIRIVA (TIOTROPIUM BROMIDE) [Concomitant]
  7. FLOVENT (FLUTICASONE PROPIOINATE) [Concomitant]
  8. ACYCLOVIR (ACYCLOVIR) [Concomitant]
  9. FENOFIBRATE (FENOFIBRATE) [Concomitant]
  10. ENABLEX (DARIFENACIN) [Concomitant]
  11. ACIDOPHILUS (LACTOBACILLUS ACIDOPHILUS) [Concomitant]
  12. GINKO BILOBA (GINKO BILOBA) [Concomitant]
     Route: 048
     Dates: start: 201301, end: 2013

REACTIONS (2)
  - Muscle spasms [None]
  - Depression [None]
